FAERS Safety Report 8966930 (Version 1)
Quarter: 2012Q4

REPORT INFORMATION
  Report Type: 
  Country: ES (occurrence: ES)
  Receive Date: 20121214
  Receipt Date: 20121214
  Transmission Date: 20130627
  Serious: Yes (Hospitalization)
  Sender: FDA-Public Use
  Company Number: ES-PFIZER INC-2006097140

PATIENT
  Age: 39 Year
  Sex: Male

DRUGS (6)
  1. DALACINE [Suspect]
     Indication: HIV INFECTION
     Dosage: 150 mg, 3x/day
     Route: 048
     Dates: start: 200506, end: 20060507
  2. IBUPROFEN [Suspect]
     Indication: PAIN
     Dosage: 600 mg, 3x/day
     Route: 048
     Dates: start: 20060401, end: 20060408
  3. AMOXICILLIN [Suspect]
     Indication: CELLULITIS
     Dosage: 750 mg, 3x/day
     Route: 048
     Dates: start: 20060401, end: 20060415
  4. NEVIRAPINE [Suspect]
     Indication: HIV INFECTION
     Dosage: 200 mg, 2x/day
     Route: 048
     Dates: start: 200506, end: 20060507
  5. LAMIVUDINE [Suspect]
     Indication: HIV INFECTION
     Dosage: 150 mg, 1x/day
     Route: 048
     Dates: start: 200506, end: 20060507
  6. TENOFOVIR [Suspect]
     Indication: HIV INFECTION
     Dosage: 245 mg, 1x/day
     Route: 048
     Dates: start: 200506, end: 20060507

REACTIONS (1)
  - Hepatitis cholestatic [Recovered/Resolved]
